FAERS Safety Report 7252517-2 (Version None)
Quarter: 2011Q1

REPORT INFORMATION
  Report Type: 
  Country: None (occurrence: None)
  Receive Date: 20110129
  Receipt Date: 20100104
  Transmission Date: 20110831
  Serious: No
  Sender: FDA-Public Use
  Company Number: US-ABBOTT-10P-163-0617293-00

PATIENT
  Sex: Male
  Weight: 70.37 kg

DRUGS (2)
  1. CEPHALEXIN [Concomitant]
     Indication: PRODUCT USED FOR UNKNOWN INDICATION
     Dosage: Q 6 HRS
  2. HUMIRA [Suspect]
     Indication: ANKYLOSING SPONDYLITIS
     Dates: start: 20091228

REACTIONS (3)
  - EAR PAIN [None]
  - OROPHARYNGEAL PAIN [None]
  - ODYNOPHAGIA [None]
